FAERS Safety Report 21872882 (Version 1)
Quarter: 2023Q1

REPORT INFORMATION
  Report Type: Spontaneous
  Country: FR (occurrence: FR)
  Receive Date: 20230117
  Receipt Date: 20230117
  Transmission Date: 20230417
  Serious: Yes (Death)
  Sender: FDA-Public Use
  Company Number: None

PATIENT
  Age: 67 Year
  Sex: Male

DRUGS (6)
  1. VIAGRA [Suspect]
     Active Substance: SILDENAFIL CITRATE
     Indication: Erectile dysfunction
     Dosage: 1 DOSAGE FORM,AS NECESSARY
     Route: 048
     Dates: start: 202209, end: 20221120
  2. RAMIPRIL [Concomitant]
     Active Substance: RAMIPRIL
     Indication: Hypertension
     Dosage: 2.5 MILLIGRAM, QD
     Route: 048
  3. NITROGLYCERIN [Concomitant]
     Active Substance: NITROGLYCERIN
     Indication: Cardiac disorder
     Dosage: 1 DOSAGE FORM, AS NECESSARY
     Route: 002
  4. NEBIVOLOL [Concomitant]
     Active Substance: NEBIVOLOL
     Indication: Cardiovascular event prophylaxis
     Dosage: 5 MILLIGRAM, QD
     Route: 048
  5. EZETIMIBE\ROSUVASTATIN [Concomitant]
     Active Substance: EZETIMIBE\ROSUVASTATIN
     Indication: Dyslipidaemia
     Dosage: 1 DOSAGE FORM, QD, STRENGTH 10 MG/10 MG
     Route: 048
  6. KARDEGIC [Concomitant]
     Active Substance: ASPIRIN DL-LYSINE
     Dosage: 1 DOSAGE FORM, QD
     Route: 048

REACTIONS (1)
  - Cardio-respiratory arrest [Fatal]

NARRATIVE: CASE EVENT DATE: 20221120
